FAERS Safety Report 16289588 (Version 1)
Quarter: 2019Q2

REPORT INFORMATION
  Report Type: Spontaneous
  Country: US (occurrence: US)
  Receive Date: 20190508
  Receipt Date: 20190508
  Transmission Date: 20190711
  Serious: No
  Sender: FDA-Public Use
  Company Number: None

PATIENT
  Age: 32 Year
  Sex: Female
  Weight: 76.5 kg

DRUGS (1)
  1. QBREXZA [Suspect]
     Active Substance: GLYCOPYRRONIUM TOSYLATE
     Indication: HYPERHIDROSIS
     Route: 061
     Dates: start: 20190506, end: 20190508

REACTIONS (5)
  - Oropharyngeal pain [None]
  - Dry mouth [None]
  - Dysphagia [None]
  - Skin burning sensation [None]
  - Blood pressure increased [None]

NARRATIVE: CASE EVENT DATE: 20190506
